FAERS Safety Report 24621494 (Version 3)
Quarter: 2024Q4

REPORT INFORMATION
  Report Type: Spontaneous
  Country: GB (occurrence: GB)
  Receive Date: 20241114
  Receipt Date: 20241213
  Transmission Date: 20250115
  Serious: Yes (Hospitalization)
  Sender: DAIICHI
  Company Number: GB-DSJP-DS-2024-107567-GB

PATIENT
  Age: 59 Year
  Sex: Female

DRUGS (2)
  1. ENHERTU [Suspect]
     Active Substance: FAM-TRASTUZUMAB DERUXTECAN-NXKI
     Indication: Breast cancer
     Dosage: UNK UNK, CYCLIC
     Route: 065
  2. ENHERTU [Suspect]
     Active Substance: FAM-TRASTUZUMAB DERUXTECAN-NXKI
     Dosage: UNK
     Route: 065
     Dates: start: 20240916

REACTIONS (3)
  - General physical health deterioration [Recovering/Resolving]
  - Interstitial lung disease [Recovered/Resolved]
  - Enterovirus test positive [Unknown]

NARRATIVE: CASE EVENT DATE: 20240910
